FAERS Safety Report 21290081 (Version 3)
Quarter: 2023Q1

REPORT INFORMATION
  Report Type: Report from Study
  Country: US (occurrence: US)
  Receive Date: 20220902
  Receipt Date: 20230303
  Transmission Date: 20230417
  Serious: Yes (Hospitalization, Other)
  Sender: FDA-Public Use
  Company Number: US-TAKEDA-US201845270

PATIENT
  Age: 68 Year
  Sex: Female
  Weight: 58 kg

DRUGS (13)
  1. TEDUGLUTIDE [Suspect]
     Active Substance: TEDUGLUTIDE
     Indication: Short-bowel syndrome
     Dosage: 2.91 MILLIGRAM, QD
     Route: 042
     Dates: start: 20180216, end: 20190110
  2. TEDUGLUTIDE [Suspect]
     Active Substance: TEDUGLUTIDE
     Indication: Short-bowel syndrome
     Dosage: 2.91 MILLIGRAM, QD
     Route: 042
     Dates: start: 20180216, end: 20190110
  3. TEDUGLUTIDE [Suspect]
     Active Substance: TEDUGLUTIDE
     Indication: Short-bowel syndrome
     Dosage: 2.91 MILLIGRAM, QD
     Route: 042
     Dates: start: 20180216, end: 20190110
  4. TEDUGLUTIDE [Suspect]
     Active Substance: TEDUGLUTIDE
     Indication: Short-bowel syndrome
     Dosage: 2.91 MILLIGRAM, QD
     Route: 042
     Dates: start: 20180216, end: 20190110
  5. CEFTRIAXONE [Concomitant]
     Active Substance: CEFTRIAXONE
     Indication: Vascular device infection
  6. SODIUM CHLORIDE [Concomitant]
     Active Substance: SODIUM CHLORIDE
     Indication: Short-bowel syndrome
  7. VANCOMYCIN [Concomitant]
     Active Substance: VANCOMYCIN
     Indication: Vascular device infection
  8. PANTOPRAZOLE [Concomitant]
     Active Substance: PANTOPRAZOLE
     Indication: Gastrooesophageal reflux disease
  9. OCTREOTIDE [Concomitant]
     Active Substance: OCTREOTIDE
     Indication: Diarrhoea
     Dosage: 50 MICROGRAM, TID
     Route: 058
     Dates: start: 20220601
  10. VITAMIN D2 [Concomitant]
     Active Substance: ERGOCALCIFEROL
     Indication: Vitamin D deficiency
     Dosage: 1.25 MILLIGRAM, 1/WEEK
     Route: 048
     Dates: start: 20210610
  11. NICODERM CQ [Concomitant]
     Active Substance: NICOTINE
     Indication: Tobacco abuse
     Dosage: 7 MILLIGRAM, QD
     Route: 062
     Dates: start: 20211026, end: 20211111
  12. NICOTINE [Concomitant]
     Active Substance: NICOTINE
     Indication: Tobacco abuse
     Dosage: 4 MILLIGRAM
     Route: 048
     Dates: start: 20200714
  13. DOXYCYCLINE [Concomitant]
     Active Substance: DOXYCYCLINE
     Indication: Breast swelling
     Dosage: 100 MILLIGRAM, Q12H
     Route: 048
     Dates: start: 20220927, end: 20221004

REACTIONS (1)
  - Vascular device infection [Recovered/Resolved]

NARRATIVE: CASE EVENT DATE: 20180913
